FAERS Safety Report 14713839 (Version 2)
Quarter: 2018Q2

REPORT INFORMATION
  Report Type: Report from Study
  Country: AU (occurrence: AU)
  Receive Date: 20180404
  Receipt Date: 20180416
  Transmission Date: 20180711
  Serious: Yes (Hospitalization, Other)
  Sender: FDA-Public Use
  Company Number: PHHY2018AU052547

PATIENT
  Age: 46 Year
  Sex: Female

DRUGS (1)
  1. COSENTYX [Suspect]
     Active Substance: SECUKINUMAB
     Indication: PSORIASIS
     Dosage: 300 MG, QMO
     Route: 058
     Dates: start: 20150716

REACTIONS (10)
  - Kidney infection [Unknown]
  - Urinary tract infection [Unknown]
  - Eye movement disorder [Unknown]
  - Inappropriate schedule of drug administration [Unknown]
  - Vomiting [Unknown]
  - Pyelonephritis [Unknown]
  - Dysuria [Unknown]
  - Renal pain [Unknown]
  - Circulatory collapse [Unknown]
  - Seizure [Unknown]

NARRATIVE: CASE EVENT DATE: 20150716
